FAERS Safety Report 4412537-X (Version None)
Quarter: 2004Q2

REPORT INFORMATION
  Report Type: 
  Country: None (occurrence: None)
  Receive Date: 20040630
  Receipt Date: 20040331
  Transmission Date: 20050107
  Serious: No
  Sender: FDA-Public Use
  Company Number: 04P-163-0256031-00

PATIENT
  Age: 73 Year
  Sex: Female
  Weight: 56.6996 kg

DRUGS (15)
  1. HUMIRA [Suspect]
     Indication: RHEUMATOID ARTHRITIS
     Dosage: 40 MG, 1 IN 2 WK, SUBCUTANEOUS
     Route: 058
     Dates: start: 20030801, end: 20040322
  2. ROFECOXIB [Concomitant]
  3. RAMIPRIL [Concomitant]
  4. ACETYLCALICYLIC ACID [Concomitant]
  5. ATORVASTATIN CALCIUM [Concomitant]
  6. SERTRALINE HYDROCHLORIDE [Concomitant]
  7. LEVOTHYROXINE SODIUM [Concomitant]
  8. FOLIC ACID [Concomitant]
  9. TOCOPHEROL CONCENTRATE CAP [Concomitant]
  10. B-KOMPLEX ^LECIVA^ [Concomitant]
  11. GLUCOSE OXIDASE [Concomitant]
  12. ASCORBIC ACID [Concomitant]
  13. C Q 10 [Concomitant]
  14. CALCIUM [Concomitant]
  15. METHOTREXATE [Concomitant]

REACTIONS (2)
  - DRUG INEFFECTIVE [None]
  - HEPATIC ENZYME INCREASED [None]
